FAERS Safety Report 8986727 (Version 1)
Quarter: 2012Q4

REPORT INFORMATION
  Report Type: Spontaneous
  Country: US (occurrence: None)
  Receive Date: 20121219
  Receipt Date: 20121219
  Transmission Date: 20130627
  Serious: No
  Sender: FDA-Public Use
  Company Number: None

PATIENT
  Sex: Female

DRUGS (2)
  1. METHADONE [Suspect]
  2. QUETIAPINE [Suspect]

REACTIONS (7)
  - Palpitations [None]
  - Self-medication [None]
  - Euphoric mood [None]
  - Dizziness [None]
  - Overdose [None]
  - Drug dispensing error [None]
  - Blood pressure diastolic decreased [None]
